FAERS Safety Report 6183334-2 (Version None)
Quarter: 2009Q2

REPORT INFORMATION
  Report Type: 
  Country: None (occurrence: None)
  Receive Date: 20090506
  Receipt Date: 20090422
  Transmission Date: 20091009
  Serious: Yes (Hospitalization, Other)
  Sender: FDA-Public Use
  Company Number: 2009S1007076

PATIENT
  Age: 66 Year
  Sex: Male

DRUGS (13)
  1. WARFARIN SODIUM [Suspect]
     Indication: THROMBOSIS PROPHYLAXIS
     Dosage: ORAL
     Route: 048
     Dates: start: 20081008, end: 20090414
  2. ERLOTINIB (ERLOTINIB) [Suspect]
     Indication: NON-SMALL CELL LUNG CANCER METASTATIC
     Dosage: 150 MG; DAILY; ORAL
     Route: 048
     Dates: start: 20090326
  3. AMITRIPTYLINE (CON.) [Concomitant]
  4. FERROUS SULPHATE (CON.) [Concomitant]
  5. HYDROCORTISONE (CON.) [Concomitant]
  6. MORPHINE (CON.) [Concomitant]
  7. MOVICOL (CON.) [Concomitant]
  8. PARACETAMOL (CON.) [Concomitant]
  9. RANITIDINE (CON.) [Concomitant]
  10. SENNA (CON.) [Concomitant]
  11. SIMVASTATIN (CON.) [Concomitant]
  12. CISPLATIN (PREV.) [Concomitant]
  13. VINORELBINE (PREV.) [Concomitant]

REACTIONS (2)
  - DRUG INTERACTION [None]
  - INTERNATIONAL NORMALISED RATIO INCREASED [None]
